FAERS Safety Report 20516144 (Version 2)
Quarter: 2022Q1

REPORT INFORMATION
  Report Type: Spontaneous
  Country: US (occurrence: US)
  Receive Date: 20220225
  Receipt Date: 20220331
  Transmission Date: 20220423
  Serious: Yes (Other)
  Sender: FDA-Public Use
  Company Number: US-JNJFOC-20220234409

PATIENT
  Age: 6 Decade
  Sex: Male

DRUGS (1)
  1. ROGAINE [Suspect]
     Active Substance: MINOXIDIL
     Indication: Product used for unknown indication
     Route: 065
     Dates: start: 2021, end: 20220215

REACTIONS (2)
  - Erectile dysfunction [Not Recovered/Not Resolved]
  - Drug ineffective [Unknown]
